FAERS Safety Report 5227550-2 (Version None)
Quarter: 2007Q1

REPORT INFORMATION
  Report Type: 
  Country: None (occurrence: None)
  Receive Date: 20070202
  Receipt Date: 20070123
  Transmission Date: 20070707
  Serious: Yes (Hospitalization, Other)
  Sender: FDA-Public Use
  Company Number: US-ELI_LILLY_AND_COMPANY-US200610003000

PATIENT
  Sex: Female
  Weight: 122.45 kg

DRUGS (1)
  1. ZYPREXA [Suspect]
     Dosage: 5 MG, UNK
     Dates: start: 20030414

REACTIONS (2)
  - DIABETES MELLITUS [None]
  - EPILEPSY [None]
